FAERS Safety Report 6532531-2 (Version None)
Quarter: 2010Q1

REPORT INFORMATION
  Report Type: 
  Country: None (occurrence: None)
  Receive Date: 20100111
  Receipt Date: 20100104
  Transmission Date: 20100710
  Serious: Yes (Hospitalization, Other)
  Sender: FDA-Public Use
  Company Number: US-JNJFOC-20100100997

PATIENT
  Sex: Female
  Weight: 61.24 kg

DRUGS (4)
  1. DURAGESIC-100 [Suspect]
     Indication: ARTHRALGIA
     Route: 062
  2. DURAGESIC-100 [Suspect]
     Route: 062
  3. PROTONIX [Concomitant]
     Indication: GASTRIC DISORDER
     Route: 048
  4. ONDANSETRON [Concomitant]
     Indication: NAUSEA
     Route: 048

REACTIONS (2)
  - DRUG EFFECT DECREASED [None]
  - HOSPITALISATION [None]
